FAERS Safety Report 6988533-5 (Version None)
Quarter: 2010Q3

REPORT INFORMATION
  Report Type: 
  Country: None (occurrence: None)
  Receive Date: 20100914
  Receipt Date: 20100904
  Transmission Date: 20110219
  Serious: Yes (Other)
  Sender: FDA-Public Use
  Company Number: 2010US003259

PATIENT
  Sex: Male

DRUGS (5)
  1. VESICARE [Suspect]
     Indication: NOCTURIA
     Dosage: ORAL
     Route: 048
     Dates: start: 20100601
  2. VESICARE [Suspect]
     Indication: POLYURIA
     Dosage: ORAL
     Route: 048
     Dates: start: 20100601
  3. VESICARE [Suspect]
     Indication: URINARY INCONTINENCE
     Dosage: ORAL
     Route: 048
     Dates: start: 20100601
  4. ETODOLAC [Concomitant]
  5. MULTI-VITAMINS [Concomitant]

REACTIONS (1)
  - MACULAR DEGENERATION [None]
